FAERS Safety Report 12667797 (Version 2)
Quarter: 2016Q3

REPORT INFORMATION
  Report Type: Report from Study
  Country: SG (occurrence: SG)
  Receive Date: 20160819
  Receipt Date: 20160826
  Transmission Date: 20161109
  Serious: Yes (Other)
  Sender: FDA-Public Use
  Company Number: SG-AMGEN-SGPNI2016104549

PATIENT
  Age: 4 Year
  Sex: Male

DRUGS (4)
  1. BACTRIM [Concomitant]
     Active Substance: SULFAMETHOXAZOLE\TRIMETHOPRIM
     Dosage: 2 DF ( 4 W/ 80 MG), 2 TIMES/WK
     Route: 048
     Dates: start: 20160425, end: 20160426
  2. BORTEZOMIB [Concomitant]
     Active Substance: BORTEZOMIB
  3. BLINATUMOMAB [Suspect]
     Active Substance: BLINATUMOMAB
     Indication: ACUTE LYMPHOCYTIC LEUKAEMIA RECURRENT
     Dosage: 15 MUG, QD
     Route: 042
     Dates: start: 20160413
  4. CLOFARABINE [Concomitant]
     Active Substance: CLOFARABINE

REACTIONS (2)
  - Chills [Unknown]
  - Vasculitis [Recovered/Resolved]

NARRATIVE: CASE EVENT DATE: 20160416
